FAERS Safety Report 9681063 (Version 2)
Quarter: 2013Q4

REPORT INFORMATION
  Report Type: Spontaneous
  Country: CA (occurrence: CA)
  Receive Date: 20131111
  Receipt Date: 20131226
  Transmission Date: 20140711
  Serious: Yes (Hospitalization)
  Sender: FDA-Public Use
  Company Number: CA-SA-2013SA113067

PATIENT
  Age: 83 Year
  Sex: Female

DRUGS (16)
  1. FERRLECIT [Suspect]
     Indication: RENAL FAILURE CHRONIC
     Route: 042
     Dates: start: 20121209, end: 20121212
  2. FERRLECIT [Suspect]
     Indication: ANAEMIA
     Route: 042
     Dates: start: 20121209, end: 20121212
  3. ACETYLSALICYLIC ACID [Concomitant]
     Dosage: STRENGTH: 81 MG
  4. CALCIUM CARBONATE [Concomitant]
     Dosage: STRENGTH: 500 MG
  5. CHOLECALCIFEROL [Concomitant]
     Dosage: STRENGTH: 1000 UNITS
  6. CYANOCOBALAMIN [Concomitant]
     Dosage: STRENGTH: 1000 MG
  7. DILTIAZEM [Concomitant]
     Dosage: STRENGTH: 360 MG
  8. DOMPERIDONE [Concomitant]
     Dosage: STRENGTH: 10 MG
  9. DOXAZOSIN [Concomitant]
     Dosage: STRENGTH: 8 MG
  10. FERROUS GLUCONATE [Concomitant]
     Dosage: STRENGTH: 900 MG
  11. FUROSEMIDE [Concomitant]
     Dosage: STRENGTH: 40 MG
  12. GABAPENTIN [Concomitant]
     Dosage: STRENGTH: 100 MG
  13. LEVOTHYROXINE [Concomitant]
     Dosage: STRENGTH: 75 MCG
  14. LISINOPRIL [Concomitant]
     Dosage: STRENGTH: 20 MG
  15. NITROGLYCERINE [Concomitant]
     Dosage: 0.4 MG PATCHES
  16. PANTOPRAZOLE [Concomitant]
     Dosage: STRENGTH: 40 MG

REACTIONS (1)
  - Cardiac failure congestive [Recovered/Resolved]
